FAERS Safety Report 6553644-5 (Version None)
Quarter: 2010Q1

REPORT INFORMATION
  Report Type: 
  Country: None (occurrence: None)
  Receive Date: 20100127
  Receipt Date: 20100120
  Transmission Date: 20100710
  Serious: Yes (Hospitalization, Other)
  Sender: FDA-Public Use
  Company Number: IT-ROXANE LABORATORIES, INC.-2010-RO-00060RO

PATIENT
  Age: 50 Year
  Sex: Male

DRUGS (4)
  1. AZATHIOPRINE [Suspect]
     Indication: COLITIS
     Dosage: 50 MG
     Dates: start: 20070901
  2. METHYLPREDNISOLONE [Suspect]
     Dosage: 40 MG
     Route: 030
  3. METHYLPREDNISOLONE [Suspect]
     Route: 048
  4. MESALAZINE [Concomitant]
     Dates: start: 20071201

REACTIONS (5)
  - CHOLESTATIC LIVER INJURY [None]
  - HEPATIC NECROSIS [None]
  - HEPATITIS CHOLESTATIC [None]
  - IDIOSYNCRATIC DRUG REACTION [None]
  - THERAPEUTIC AGENT TOXICITY [None]
